FAERS Safety Report 7690348-X (Version None)
Quarter: 2011Q3

REPORT INFORMATION
  Report Type: 
  Country: None (occurrence: None)
  Receive Date: 20110818
  Receipt Date: 20110805
  Transmission Date: 20111222
  Serious: Yes (Other)
  Sender: FDA-Public Use
  Company Number: JP-JNJFOC-20110709059

PATIENT
  Age: 57 Year
  Sex: Male

DRUGS (4)
  1. PREZISTA [Suspect]
     Indication: HIV INFECTION
     Route: 048
     Dates: start: 20110714
  2. TRUVADA [Suspect]
     Indication: HIV INFECTION
     Route: 048
  3. SULFAMETHOXAZOLE [Concomitant]
  4. RITONAVIR [Suspect]
     Indication: HIV INFECTION
     Route: 048

REACTIONS (3)
  - NEUTROPHIL COUNT DECREASED [None]
  - FEBRILE NEUTROPENIA [None]
  - WHITE BLOOD CELL COUNT DECREASED [None]
